FAERS Safety Report 7226567-6 (Version None)
Quarter: 2011Q1

REPORT INFORMATION
  Report Type: 
  Country: None (occurrence: None)
  Receive Date: 20110105
  Receipt Date: 20101220
  Transmission Date: 20110831
  Serious: Yes (Hospitalization)
  Sender: FDA-Public Use
  Company Number: 2007000856

PATIENT
  Age: 72 Year
  Sex: Female
  Weight: 54.8852 kg

DRUGS (26)
  1. PLACEBO (PLACEBO) (INJECTION FOR INFUSION) [Suspect]
     Dosage: 915 MG (915 MG, Q3W/100MG), INTRAVENOUS
     Route: 042
     Dates: start: 20061128
  2. NORVASC [Concomitant]
  3. TRAZODONE (TRAZODONE) [Concomitant]
  4. THROAT LOZENGES [Concomitant]
  5. SALINE NASAL SPRAY (SODIUM CHLORIDE) [Concomitant]
  6. PLACEBO (PLACEBO) INJECTION FOR INFUSION) [Suspect]
  7. MUPIROCIN CREAM (MUPIROCIN) [Concomitant]
  8. IMODIUM [Concomitant]
  9. SYSTANE (MARCROGOL) [Concomitant]
  10. KEFELX (CEFALEXIN MONOHYDRATE) [Concomitant]
  11. OXYQUINOLINE [Concomitant]
  12. EUGENOL (EUGENOL) [Concomitant]
  13. BENZODENT (BENZODENT) [Concomitant]
  14. BENZOCAINE (BENZOCAINE) [Concomitant]
  15. ATIVAN [Concomitant]
  16. COLD AND SINUS REMEDIES [Concomitant]
  17. REMERON [Concomitant]
  18. BACTROBAN [Concomitant]
  19. ROBITUSSIN [Concomitant]
  20. COMPRAZINE (PROCHLORPERAZINE EDISYLATE) [Concomitant]
  21. HYDROCORTISONE CREAM (HYDROCORTISONE) [Concomitant]
  22. ENALAPRIL MALEATE [Concomitant]
  23. PREDNISONE TAB [Concomitant]
  24. ERLOTINIB (TABLET) [Suspect]
     Indication: NON-SMALL CELL LUNG CANCER
     Dosage: 100 MG (100 MG, QD), ORAL
     Route: 048
     Dates: start: 20061127
  25. SYNTHROID [Concomitant]
  26. CIPRO [Concomitant]

REACTIONS (7)
  - HYDROPNEUMOTHORAX [None]
  - OESOPHAGEAL STENOSIS [None]
  - MUCOSAL NECROSIS [None]
  - NON-SMALL CELL LUNG CANCER [None]
  - LUNG NEOPLASM [None]
  - TUMOUR INVASION [None]
  - NEOPLASM MALIGNANT [None]
